FAERS Safety Report 15334980 (Version 2)
Quarter: 2018Q3

REPORT INFORMATION
  Report Type: Report from Study
  Country: MX (occurrence: MX)
  Receive Date: 20180830
  Receipt Date: 20180928
  Transmission Date: 20181010
  Serious: Yes (Other)
  Sender: FDA-Public Use
  Company Number: PHHY2018MX081281

PATIENT
  Age: 61 Year
  Sex: Female

DRUGS (9)
  1. EXFORGE [Suspect]
     Active Substance: AMLODIPINE BESYLATE\VALSARTAN
     Indication: HYPERTENSION
     Dosage: 1 DF, QD (VALSARTAN 160 MG, AMLODIPINE 5 MG)
     Route: 048
     Dates: start: 201808
  2. INSULIN [Concomitant]
     Active Substance: INSULIN NOS
     Indication: BLOOD GLUCOSE INCREASED
     Dosage: 18 U, QD (3 YEARS AGO APPROXIMATELY)
     Route: 065
  3. EXFORGE HCT [Suspect]
     Active Substance: AMLODIPINE BESYLATE\HYDROCHLOROTHIAZIDE\VALSARTAN
     Indication: HYPERTENSION
     Dosage: 1 DF(AMLODIPINE 5 MG HYDROCHLOROTHIAZIDE 12.5 MG VALSARTAN 160 MG), QD(5 YEARS AGO)
     Route: 048
  4. METFORMIN HYDROCHLORIDE AND GLIBENCLAMIDE [Concomitant]
     Indication: BLOOD GLUCOSE INCREASED
     Dosage: 2 DF, QD (03 YEARS AGO APPROXIMATELY)
     Route: 048
  5. FUROSEMIDE. [Concomitant]
     Active Substance: FUROSEMIDE
     Indication: PROPHYLAXIS
     Dosage: 1 DF, QD (1 YEAR AGO)
     Route: 048
  6. EXFORGE HCT [Suspect]
     Active Substance: AMLODIPINE BESYLATE\HYDROCHLOROTHIAZIDE\VALSARTAN
     Dosage: 1 DF(AMLODIPINE 5 MG HYDROCHLOROTHIAZIDE 12.5 MG VALSARTAN 160 MG), QD (2 YEARS AGO)
     Route: 048
     Dates: end: 201808
  7. INSULIN [Concomitant]
     Active Substance: INSULIN NOS
     Indication: DIABETES MELLITUS
     Dosage: 34 U, UNK(16 IN THE MORNING 18 AT THE NIGHT)
     Route: 059
  8. METFORMIN HYDROCHLORIDE AND GLIBENCLAMIDE [Concomitant]
     Indication: DIABETES MELLITUS
  9. EXFORGE [Suspect]
     Active Substance: AMLODIPINE BESYLATE\VALSARTAN
     Indication: HYPERTENSION

REACTIONS (4)
  - Dysstasia [Recovered/Resolved]
  - Pneumonia [Recovered/Resolved]
  - Cardiomegaly [Unknown]
  - Renal failure [Not Recovered/Not Resolved]

NARRATIVE: CASE EVENT DATE: 20180810
